FAERS Safety Report 5748368-8 (Version None)
Quarter: 2008Q2

REPORT INFORMATION
  Report Type: 
  Country: None (occurrence: None)
  Receive Date: 20080520
  Receipt Date: 20080506
  Transmission Date: 20081010
  Serious: Yes (Hospitalization)
  Sender: FDA-Public Use
  Company Number: 230426J08CAN

PATIENT
  Age: 50 Year
  Sex: Male

DRUGS (3)
  1. REBIF [Suspect]
     Indication: MULTIPLE SCLEROSIS
     Dates: start: 20080115
  2. REBIF [Suspect]
     Indication: RELAPSING-REMITTING MULTIPLE SCLEROSIS
     Dates: start: 20080115
  3. COTYLENOL [Concomitant]

REACTIONS (3)
  - FEELING COLD [None]
  - PAIN IN EXTREMITY [None]
  - TRIGEMINAL NEURALGIA [None]
